FAERS Safety Report 8586004-6 (Version None)
Quarter: 2012Q3

REPORT INFORMATION
  Report Type: 
  Country: None (occurrence: None)
  Receive Date: 20120810
  Receipt Date: 20120802
  Transmission Date: 20120928
  Serious: Yes (Death, Other)
  Sender: FDA-Public Use
  Company Number: IE-ACTELION-A-CH2012-67812

PATIENT
  Age: 30 Year
  Sex: Male

DRUGS (2)
  1. TRACLEER [Suspect]
     Indication: RAYNAUD'S PHENOMENON
     Dosage: 125 MG, BID
     Route: 048
     Dates: start: 20110301, end: 20110917
  2. TRACLEER [Suspect]
     Dosage: 62.5 MG, BID
     Route: 048
     Dates: start: 20110201, end: 20110301

REACTIONS (5)
  - RESPIRATORY FAILURE [None]
  - RAYNAUD'S PHENOMENON [None]
  - PAIN [None]
  - CYSTIC FIBROSIS [None]
  - RENAL FAILURE [None]
